FAERS Safety Report 11060696 (Version 1)
Quarter: 2015Q2

REPORT INFORMATION
  Report Type: Spontaneous
  Country: US (occurrence: US)
  Receive Date: 20150423
  Receipt Date: 20150423
  Transmission Date: 20150821
  Serious: Yes (Hospitalization)
  Sender: FDA-Public Use
  Company Number: US-ALKERMES INC.-ALK-2014-002867

PATIENT

DRUGS (3)
  1. METHADONE [Concomitant]
     Active Substance: METHADONE HYDROCHLORIDE
     Indication: DRUG DEPENDENCE
     Dosage: UNK, QD
     Route: 048
     Dates: start: 201310, end: 20140421
  2. VIVITROL [Suspect]
     Active Substance: NALTREXONE
     Indication: DRUG DEPENDENCE
     Dosage: 380 MG, ONE TIME DOSE
     Route: 030
     Dates: start: 20140424, end: 20140424
  3. TESTOSTERONE. [Concomitant]
     Active Substance: TESTOSTERONE
     Indication: PRODUCT USED FOR UNKNOWN INDICATION
     Route: 030

REACTIONS (7)
  - Drug withdrawal syndrome [Recovered/Resolved]
  - Drug administration error [Recovered/Resolved]
  - Tachypnoea [Recovered/Resolved]
  - Incorrect route of drug administration [Recovered/Resolved]
  - Mental status changes [Recovered/Resolved]
  - Hyperhidrosis [Recovered/Resolved]
  - Tachycardia [Recovered/Resolved]

NARRATIVE: CASE EVENT DATE: 20140424
